FAERS Safety Report 25948849 (Version 1)
Quarter: 2025Q4

REPORT INFORMATION
  Report Type: Spontaneous
  Country: US (occurrence: None)
  Receive Date: 20251022
  Receipt Date: 20251022
  Transmission Date: 20260118
  Serious: Yes (Hospitalization)
  Sender: ACS DOBFAR
  Company Number: US-MLMSERVICE-20251006-PI663735-00085-1

PATIENT
  Age: 8 Decade
  Sex: Female

DRUGS (1)
  1. CEFAZOLIN [Suspect]
     Active Substance: CEFAZOLIN
     Indication: Sepsis
     Dosage: ()

REACTIONS (1)
  - Cutaneous vasculitis [Unknown]
